FAERS Safety Report 4490300-1 (Version None)
Quarter: 2004Q4

REPORT INFORMATION
  Report Type: 
  Country: None (occurrence: None)
  Receive Date: 20041101
  Receipt Date: 20041027
  Transmission Date: 20050328
  Serious: Yes (Other)
  Sender: FDA-Public Use
  Company Number: DE-MERCK-0410DEU00762

PATIENT
  Age: 49 Year
  Sex: Female

DRUGS (3)
  1. VIOXX [Suspect]
     Indication: PAIN
     Route: 048
     Dates: start: 19980101
  2. VIOXX [Suspect]
     Route: 048
     Dates: start: 19980101
  3. VIOXX [Suspect]
     Route: 048
     Dates: start: 19980101

REACTIONS (3)
  - CARDIAC FAILURE [None]
  - SILENT MYOCARDIAL INFARCTION [None]
  - TACHYCARDIA [None]
